FAERS Safety Report 6993166-0 (Version None)
Quarter: 2010Q3

REPORT INFORMATION
  Report Type: 
  Country: None (occurrence: None)
  Receive Date: 20100917
  Receipt Date: 20100527
  Transmission Date: 20110219
  Serious: Yes (Hospitalization, Other)
  Sender: FDA-Public Use
  Company Number: US-ASTRAZENECA-2007UW09722

PATIENT
  Age: 265 Month
  Sex: Male
  Weight: 77.1 kg

DRUGS (8)
  1. SEROQUEL [Suspect]
     Indication: SCHIZOPHRENIA
     Route: 048
     Dates: start: 20030627, end: 20040226
  2. RISPERDAL [Suspect]
     Dates: start: 20010301, end: 20021101
  3. ABILIFY [Concomitant]
     Dates: start: 20030301
  4. ABILIFY [Concomitant]
     Dates: start: 20030301
  5. CLOZARIL [Concomitant]
     Dates: start: 20011001, end: 20040901
  6. HALDOL [Concomitant]
     Dates: start: 20040309, end: 20040330
  7. MIRTAZAPINE [Concomitant]
     Dates: start: 20030501, end: 20040901
  8. MIRTAZAPINE [Concomitant]
     Dates: start: 20030501, end: 20040901

REACTIONS (6)
  - DIABETES MELLITUS [None]
  - DIABETES MELLITUS INADEQUATE CONTROL [None]
  - DIABETIC KETOACIDOSIS [None]
  - PANCREATITIS [None]
  - THIRST [None]
  - WEIGHT DECREASED [None]
